FAERS Safety Report 10026723 (Version 1)
Quarter: 2014Q1

REPORT INFORMATION
  Report Type: Spontaneous
  Country: US (occurrence: US)
  Receive Date: 20140321
  Receipt Date: 20140321
  Transmission Date: 20141002
  Serious: No
  Sender: FDA-Public Use
  Company Number: US-009507513-1403USA008852

PATIENT
  Age: 28 Year
  Sex: Female

DRUGS (2)
  1. NUVARING [Suspect]
     Dosage: 3 WEEKS IN 1 WEEK OUT
     Route: 067
     Dates: start: 20140314
  2. NUVARING [Suspect]
     Dosage: 3 WEEKS IN 1 WEEK OUT
     Route: 067
     Dates: start: 200912

REACTIONS (1)
  - Inappropriate schedule of drug administration [Unknown]
